FAERS Safety Report 11449931 (Version 1)
Quarter: 2015Q3

REPORT INFORMATION
  Report Type: Spontaneous
  Country: US (occurrence: US)
  Receive Date: 20150903
  Receipt Date: 20150903
  Transmission Date: 20151125
  Serious: No
  Sender: FDA-Public Use
  Company Number: US-ROCHE-721466

PATIENT
  Age: 50 Year
  Sex: Male

DRUGS (5)
  1. PEGASYS [Suspect]
     Active Substance: PEGINTERFERON ALFA-2A
     Indication: HEPATITIS C
     Dosage: FORM: PRE FILLED SYRINGE
     Route: 065
  2. RIBAVIRIN. [Suspect]
     Active Substance: RIBAVIRIN
     Indication: HEPATITIS C
     Dosage: IN DIVIDED DOSES.
     Route: 065
  3. VICTRELIS [Concomitant]
     Active Substance: BOCEPREVIR
     Route: 065
     Dates: start: 20120301
  4. RIBAVIRIN. [Suspect]
     Active Substance: RIBAVIRIN
     Route: 065
  5. PEGASYS [Suspect]
     Active Substance: PEGINTERFERON ALFA-2A
     Route: 065

REACTIONS (5)
  - White blood cell count decreased [Unknown]
  - Joint swelling [Unknown]
  - Pyrexia [Not Recovered/Not Resolved]
  - Wound [Unknown]
  - Blood disorder [Unknown]

NARRATIVE: CASE EVENT DATE: 20100810
